FAERS Safety Report 7250728-3 (Version None)
Quarter: 2011Q1

REPORT INFORMATION
  Report Type: 
  Country: None (occurrence: None)
  Receive Date: 20110119
  Receipt Date: 20110107
  Transmission Date: 20110831
  Serious: Yes (Hospitalization)
  Sender: FDA-Public Use
  Company Number: CIP11000033

PATIENT
  Age: 71 Year
  Sex: Female

DRUGS (6)
  1. OTHER ANTIHYPERTENSIVES [Concomitant]
  2. ACTONEL [Suspect]
     Indication: OSTEOPOROSIS
     Dosage: 150 MG ONCE MONTHLY, ORAL
     Route: 048
     Dates: start: 20080101
  3. ALBUTEROL /00139501/ (SALBUTAMOL) [Concomitant]
  4. LASIX [Concomitant]
  5. SPIRIVA [Concomitant]
  6. ALL OTHER THERAPEUTIC PRODUCTS [Concomitant]

REACTIONS (6)
  - ATRIAL FIBRILLATION [None]
  - CORONARY ARTERY OCCLUSION [None]
  - CARDIAC ANEURYSM [None]
  - BONE DISORDER [None]
  - LUNG NEOPLASM MALIGNANT [None]
  - ATRIOVENTRICULAR BLOCK [None]
